FAERS Safety Report 5055859-4 (Version None)
Quarter: 2006Q3

REPORT INFORMATION
  Report Type: 
  Country: None (occurrence: None)
  Receive Date: 20060718
  Receipt Date: 20060718
  Transmission Date: 20061208
  Serious: Yes (Hospitalization)
  Sender: FDA-Public Use
  Company Number: None

PATIENT
  Age: 58 Year
  Sex: Male
  Weight: 56.9 kg

DRUGS (1)
  1. HYDROCODONE [Suspect]

REACTIONS (5)
  - ABDOMINAL PAIN [None]
  - ALCOHOL USE [None]
  - GASTRITIS [None]
  - HYPONATRAEMIA [None]
  - OVERDOSE [None]
